FAERS Safety Report 4751280-4 (Version None)
Quarter: 2005Q3

REPORT INFORMATION
  Report Type: 
  Country: None (occurrence: None)
  Receive Date: 20050824
  Receipt Date: 20050816
  Transmission Date: 20060218
  Serious: Yes (Other)
  Sender: FDA-Public Use
  Company Number: US-JNJFOC-20050704403

PATIENT

DRUGS (2)
  1. REMICADE [Suspect]
     Indication: PSORIASIS
  2. METHOTREXATE [Suspect]
     Indication: DRUG USE FOR UNKNOWN INDICATION

REACTIONS (2)
  - BIOPSY LIVER ABNORMAL [None]
  - THERAPEUTIC RESPONSE DECREASED [None]
